FAERS Safety Report 11359181 (Version 2)
Quarter: 2016Q2

REPORT INFORMATION
  Report Type: Spontaneous
  Country: NL (occurrence: NL)
  Receive Date: 20150807
  Receipt Date: 20160520
  Transmission Date: 20160815
  Serious: Yes (Death)
  Sender: FDA-Public Use
  Company Number: NL-ASTRAZENECA-2015SE75699

PATIENT
  Age: 29785 Day
  Sex: Female

DRUGS (3)
  1. FASLODEX [Suspect]
     Active Substance: FULVESTRANT
     Indication: BREAST CANCER METASTATIC
     Dosage: 50 MG/ML, 5ML 2X, 1X EVERY 4 WEEKS
     Route: 030
     Dates: start: 20150522
  2. FASLODEX [Suspect]
     Active Substance: FULVESTRANT
     Indication: BREAST CANCER METASTATIC
     Dosage: 50 MG/ML, 5ML 2X, 1X EVERY 4 WEEKS
     Route: 030
     Dates: start: 20150619
  3. FASLODEX [Suspect]
     Active Substance: FULVESTRANT
     Indication: BREAST CANCER METASTATIC
     Dosage: 50 MG/ML, 5ML 2X, 1X EVERY 4 WEEKS
     Route: 030
     Dates: start: 20150717

REACTIONS (1)
  - Malignant neoplasm progression [Fatal]

NARRATIVE: CASE EVENT DATE: 20150725
